FAERS Safety Report 9950325 (Version 1)
Quarter: 2014Q1

REPORT INFORMATION
  Report Type: Report from Study
  Country: DE (occurrence: DE)
  Receive Date: 20140304
  Receipt Date: 20140304
  Transmission Date: 20141002
  Serious: Yes (Other)
  Sender: FDA-Public Use
  Company Number: DE-SA-2014SA022489

PATIENT
  Age: 47 Year
  Sex: Female
  Weight: 81 kg

DRUGS (5)
  1. MULTAQ [Suspect]
     Indication: ATRIAL FIBRILLATION
     Route: 065
     Dates: start: 20120222
  2. BETA BLOCKING AGENTS [Concomitant]
     Dates: start: 201202
  3. ASS [Concomitant]
  4. ANTIDEPRESSANTS [Concomitant]
  5. ACE INHIBITOR NOS [Concomitant]

REACTIONS (1)
  - Atrial fibrillation [Unknown]
